FAERS Safety Report 9536133 (Version 1)
Quarter: 2013Q2

REPORT INFORMATION
  Report Type: Spontaneous
  Country: US (occurrence: None)
  Receive Date: 20130507
  Receipt Date: 20130507
  Transmission Date: 20140414
  Serious: No
  Sender: FDA-Public Use
  Company Number: PHEH2013US001811

PATIENT
  Age: 56 Year
  Sex: Male

DRUGS (8)
  1. AFINITOR (RAD) UNKNOWN [Suspect]
     Indication: CARCINOID SYNDROME
     Route: 048
     Dates: start: 20121106, end: 20121121
  2. SANDOSTATIN LAR (OCTREOTIDE ACETATE) [Concomitant]
  3. PRINIVIL (LISINOPRIL DIHYDRATE) [Concomitant]
  4. FLEXERIL (CYCLOBENZAPRINE HYDROCHLORIDE) [Concomitant]
  5. XANAX (ALPRAZOLAM) [Concomitant]
  6. MORPHINE (MORPHINE) (UNKNOWN) (MORPHINE) [Concomitant]
  7. OCTREOTIDE (OCTREOTIDE) [Concomitant]
  8. FENTANYL (FENTANYL) [Concomitant]

REACTIONS (1)
  - Feeling abnormal [None]
